FAERS Safety Report 14023835 (Version 1)
Quarter: 2017Q3

REPORT INFORMATION
  Report Type: Spontaneous
  Country: US (occurrence: US)
  Receive Date: 20170929
  Receipt Date: 20170929
  Transmission Date: 20171128
  Serious: No
  Sender: FDA-Public Use
  Company Number: US-JUBILANT CADISTA PHARMACEUTICALS-2017JUB00246

PATIENT
  Sex: Male
  Weight: 81.18 kg

DRUGS (2)
  1. PREDNISONE. [Suspect]
     Active Substance: PREDNISONE
     Indication: SARCOIDOSIS
     Dosage: 1 TABLETS, 1X/DAY IN THE MORNING
  2. PREDNISONE. [Suspect]
     Active Substance: PREDNISONE
     Dosage: 0.5 TABLETS, 1X/DAY AT NIGHT

REACTIONS (1)
  - Treatment failure [Unknown]
